FAERS Safety Report 8255162-5 (Version None)
Quarter: 2012Q2

REPORT INFORMATION
  Report Type: 
  Country: None (occurrence: None)
  Receive Date: 20120403
  Receipt Date: 20120323
  Transmission Date: 20120825
  Serious: Yes (Other)
  Sender: FDA-Public Use
  Company Number: US-BAYER-2012-029323

PATIENT
  Age: 84 Year
  Sex: Female

DRUGS (4)
  1. VALERIAN [Interacting]
     Indication: ANXIETY
  2. ALCOHOL [Interacting]
     Indication: NERVOUSNESS
     Dosage: ONE TO TWO GLASSES OF WINE
     Route: 048
  3. DIPHENHYDRAMINE HCL [Suspect]
     Indication: SLEEP DISORDER THERAPY
     Dosage: UNK UNK, HS
     Route: 048
  4. VALERIAN [Interacting]
     Indication: NERVOUSNESS
     Dosage: MULTIPLE DOSES THROUGHOUT THE DAY
     Route: 048

REACTIONS (1)
  - SEDATION [None]
